FAERS Safety Report 14320631 (Version 2)
Quarter: 2018Q1

REPORT INFORMATION
  Report Type: Spontaneous
  Country: US (occurrence: US)
  Receive Date: 20171222
  Receipt Date: 20180117
  Transmission Date: 20180509
  Serious: No
  Sender: FDA-Public Use
  Company Number: US-MYLANLABS-2017M1076696

PATIENT
  Age: 53 Year
  Sex: Female

DRUGS (1)
  1. LEVOTHYROXINE. [Suspect]
     Active Substance: LEVOTHYROXINE
     Indication: THYROID DISORDER
     Dosage: UNK UNK, QD
     Route: 048
     Dates: start: 20171121

REACTIONS (3)
  - Dizziness [Recovered/Resolved]
  - Nausea [Recovered/Resolved]
  - Malaise [Not Recovered/Not Resolved]

NARRATIVE: CASE EVENT DATE: 20171121
